FAERS Safety Report 18513730 (Version 1)
Quarter: 2020Q4

REPORT INFORMATION
  Report Type: Spontaneous
  Country: None (occurrence: US)
  Receive Date: 20201117
  Receipt Date: 20201117
  Transmission Date: 20210114
  Serious: No
  Sender: FDA-Public Use
  Company Number: US-CARDINAL HEALTH 414, LLC-2096037

PATIENT
  Age: 71 Year
  Sex: Female
  Weight: 62.73 kg

DRUGS (1)
  1. FLUDEOXYGLUCOSE F-18. [Suspect]
     Active Substance: FLUDEOXYGLUCOSE F-18
     Indication: DIAGNOSTIC PROCEDURE
     Route: 042
     Dates: start: 20200724, end: 20200724

REACTIONS (4)
  - Nausea [Recovered/Resolved]
  - Malaise [Recovered/Resolved]
  - Dizziness [Recovered/Resolved]
  - Hyperhidrosis [Recovered/Resolved]

NARRATIVE: CASE EVENT DATE: 20200724
